FAERS Safety Report 7617774-9 (Version None)
Quarter: 2011Q3

REPORT INFORMATION
  Report Type: 
  Country: None (occurrence: None)
  Receive Date: 20110718
  Receipt Date: 20110616
  Transmission Date: 20111222
  Serious: Yes (Other)
  Sender: FDA-Public Use
  Company Number: US-BAYER-2011-031044

PATIENT
  Age: 39 Year
  Sex: Female
  Weight: 170.98 kg

DRUGS (1)
  1. MIRENA [Suspect]
     Indication: CONTRACEPTION
     Dosage: 20 ?G, CONT
     Route: 015
     Dates: start: 20100318, end: 20110301

REACTIONS (3)
  - UTERINE LEIOMYOMA [None]
  - GENITAL HAEMORRHAGE [None]
  - DEVICE EXPULSION [None]
